FAERS Safety Report 17146264 (Version 1)
Quarter: 2019Q4

REPORT INFORMATION
  Report Type: Spontaneous
  Country: FR (occurrence: FR)
  Receive Date: 20191212
  Receipt Date: 20191212
  Transmission Date: 20200122
  Serious: Yes (Other)
  Sender: FDA-Public Use
  Company Number: NVSC2019FR064918

PATIENT
  Age: 81 Year
  Sex: Female

DRUGS (1)
  1. TEGRETOL [Suspect]
     Active Substance: CARBAMAZEPINE
     Indication: EPILEPSY
     Dosage: 500 MG, QD (200 MG MATIN ET 300 MG EL SOIR)
     Route: 048
     Dates: start: 19990101, end: 20190708

REACTIONS (3)
  - Psychomotor skills impaired [Recovering/Resolving]
  - Cerebellar syndrome [Recovering/Resolving]
  - Hyponatraemia [Recovering/Resolving]

NARRATIVE: CASE EVENT DATE: 20190626
